FAERS Safety Report 22947035 (Version 2)
Quarter: 2024Q3

REPORT INFORMATION
  Report Type: Spontaneous
  Country: PL (occurrence: PL)
  Receive Date: 20230915
  Receipt Date: 20240707
  Transmission Date: 20241017
  Serious: Yes (Hospitalization, Other)
  Sender: SANDOZ
  Company Number: PL-002147023-NVSC2021PL058600

PATIENT
  Age: 46 Year
  Sex: Male

DRUGS (30)
  1. ATORVASTATIN [Suspect]
     Active Substance: ATORVASTATIN
     Indication: Cardiac failure chronic
     Dosage: 1 DOSAGE FORM, QD
     Route: 048
  2. ASPIRIN [Suspect]
     Active Substance: ASPIRIN
     Indication: Cardiac failure chronic
     Dosage: 1 DOSAGE FORM, QD
     Route: 048
  3. ASPIRIN [Suspect]
     Active Substance: ASPIRIN
     Dosage: UNK UNK, QD
     Route: 065
  4. CARVEDILOL [Suspect]
     Active Substance: CARVEDILOL
     Dosage: 2 DOSAGE FORM, QD
     Route: 065
  5. CARVEDILOL [Suspect]
     Active Substance: CARVEDILOL
     Dosage: 1 DF, Q12H
     Route: 065
  6. CARVEDILOL [Suspect]
     Active Substance: CARVEDILOL
     Dosage: 1 DOSAGE FORM, QD
     Route: 065
  7. CARVEDILOL [Suspect]
     Active Substance: CARVEDILOL
     Dosage: 2 DOSAGE FORM, QD (1 DF, BID)
     Route: 065
  8. CARVEDILOL [Suspect]
     Active Substance: CARVEDILOL
     Dosage: 2 DOSAGE FORM, QD (1 DF, BID)
     Route: 065
  9. CARVEDILOL [Suspect]
     Active Substance: CARVEDILOL
     Indication: Cardiac failure chronic
     Dosage: 1 DOSAGE FORM, BID
     Route: 065
  10. CARVEDILOL [Suspect]
     Active Substance: CARVEDILOL
     Dosage: 1 DOSAGE FORM, Q12H
     Route: 065
  11. ENTRESTO [Suspect]
     Active Substance: SACUBITRIL\VALSARTAN
     Indication: Cardiac failure chronic
     Dosage: 2 DF (OF 24/26MG)
     Route: 065
  12. ENTRESTO [Suspect]
     Active Substance: SACUBITRIL\VALSARTAN
     Dosage: 2 DF (OF 49/51MG)
     Route: 065
  13. ENTRESTO [Suspect]
     Active Substance: SACUBITRIL\VALSARTAN
     Dosage: UNK UNK, Q12H
     Route: 065
  14. ENTRESTO [Suspect]
     Active Substance: SACUBITRIL\VALSARTAN
     Dosage: UNK UNK, Q12H
     Route: 065
  15. ENTRESTO [Suspect]
     Active Substance: SACUBITRIL\VALSARTAN
     Dosage: 2 DF (OF 24/26MG)
     Route: 065
  16. ENTRESTO [Suspect]
     Active Substance: SACUBITRIL\VALSARTAN
     Dosage: 2 DF (OF 49/51MG), 2DF (OF 24/26MG)
     Route: 065
  17. ENTRESTO [Suspect]
     Active Substance: SACUBITRIL\VALSARTAN
     Dosage: 2 DF (OF 49/51MG)/2 DF (OF 24/26MG)
     Route: 065
     Dates: start: 20191128
  18. ENTRESTO [Suspect]
     Active Substance: SACUBITRIL\VALSARTAN
     Dosage: UNK
     Route: 065
  19. EPLERENONE [Suspect]
     Active Substance: EPLERENONE
     Indication: Cardiac failure chronic
     Dosage: 1 DF,QD (AT NOON)
     Route: 065
  20. IVABRADINE [Suspect]
     Active Substance: IVABRADINE
     Dosage: 10 MG, QD (5 DF, BID)
     Route: 065
  21. IVABRADINE [Suspect]
     Active Substance: IVABRADINE
     Indication: Cardiac failure chronic
     Dosage: 10 MG, QD
     Route: 065
  22. IVABRADINE HYDROCHLORIDE [Suspect]
     Active Substance: IVABRADINE HYDROCHLORIDE
     Dosage: 1 DOSAGE FORM, QD
     Route: 065
  23. IVABRADINE HYDROCHLORIDE [Suspect]
     Active Substance: IVABRADINE HYDROCHLORIDE
     Dosage: 1 DOSAGE FORM, QD (0.5 DF, BID)
     Route: 065
  24. IVABRADINE HYDROCHLORIDE [Suspect]
     Active Substance: IVABRADINE HYDROCHLORIDE
     Indication: Cardiac failure chronic
     Dosage: 10 DF, QD, (0.5 DF, BID)
     Route: 065
  25. IVABRADINE HYDROCHLORIDE [Suspect]
     Active Substance: IVABRADINE HYDROCHLORIDE
     Dosage: 10 DOSAGE FORM, QD
     Route: 065
     Dates: start: 20190522
  26. IVABRADINE HYDROCHLORIDE [Suspect]
     Active Substance: IVABRADINE HYDROCHLORIDE
     Dosage: 5 DOSAGE FORM, Q12H
     Route: 065
  27. RAMIPRIL [Suspect]
     Active Substance: RAMIPRIL
     Dosage: 1 DOSAGE FORM, QD
     Route: 048
  28. RAMIPRIL [Suspect]
     Active Substance: RAMIPRIL
     Indication: Cardiac failure chronic
     Dosage: 1 DOSAGE FORM, QD
     Route: 065
  29. ROSUVASTATIN [Suspect]
     Active Substance: ROSUVASTATIN
     Indication: Cardiac failure chronic
     Dosage: 1 DOSAGE FORM, QD
     Route: 065
  30. TORSEMIDE [Suspect]
     Active Substance: TORSEMIDE
     Indication: Cardiac failure chronic
     Dosage: 20 MG, QD
     Route: 065

REACTIONS (11)
  - Bradycardia [Unknown]
  - Feeling abnormal [Unknown]
  - Hypotension [Unknown]
  - Computerised tomogram heart [Unknown]
  - Electrocardiogram abnormal [Unknown]
  - Cardiac failure [Recovered/Resolved]
  - Cardiac failure [Recovered/Resolved]
  - Cardiac failure [Recovered/Resolved]
  - Overdose [Unknown]
  - Overdose [Unknown]
  - Cardiac failure [Recovered/Resolved]

NARRATIVE: CASE EVENT DATE: 20190522
